FAERS Safety Report 5424365-7 (Version None)
Quarter: 2007Q3

REPORT INFORMATION
  Report Type: 
  Country: None (occurrence: None)
  Receive Date: 20070727
  Receipt Date: 20070514
  Transmission Date: 20080115
  Serious: No
  Sender: FDA-Public Use
  Company Number: 263693

PATIENT
  Age: 54 Year
  Sex: Female

DRUGS (3)
  1. LEVEMIR [Suspect]
     Indication: TYPE 1 DIABETES MELLITUS
     Dosage: 26 IU, QD, SUBCUTANEOUS ; 26 IU, QD, SUBCUTANEOUS
     Route: 058
     Dates: start: 20070507, end: 20070508
  2. LEVEMIR [Suspect]
     Indication: TYPE 1 DIABETES MELLITUS
     Dosage: 26 IU, QD, SUBCUTANEOUS ; 26 IU, QD, SUBCUTANEOUS
     Route: 058
     Dates: start: 20070509, end: 20070509
  3. NEURONTIN [Concomitant]

REACTIONS (1)
  - PAIN IN EXTREMITY [None]
